FAERS Safety Report 9450027 (Version 2)
Quarter: 2013Q3

REPORT INFORMATION
  Report Type: Spontaneous
  Country: PL (occurrence: PL)
  Receive Date: 20130809
  Receipt Date: 20130829
  Transmission Date: 20140515
  Serious: Yes (Life-Threatening, Hospitalization, Other)
  Sender: FDA-Public Use
  Company Number: PL-JNJFOC-20130802320

PATIENT
  Age: 15 Year
  Sex: Male
  Weight: 46 kg

DRUGS (6)
  1. REMICADE [Suspect]
     Indication: CROHN^S DISEASE
     Dosage: SECOND DOSE, FREQUENCY 0-2 WEEK
     Route: 042
     Dates: start: 20130625, end: 20130625
  2. REMICADE [Suspect]
     Indication: CROHN^S DISEASE
     Dosage: FIRST DOSE, FREQUENCY 0-2 WEEK
     Route: 042
     Dates: start: 20130611
  3. MESALAZINE [Concomitant]
     Route: 065
     Dates: start: 2011
  4. ENCORTON [Concomitant]
     Route: 065
     Dates: start: 201304
  5. HELICID [Concomitant]
     Route: 065
     Dates: start: 201304
  6. SOLU MEDROL [Concomitant]
     Indication: PREMEDICATION
     Route: 042
     Dates: start: 20130625

REACTIONS (2)
  - Anaphylactic reaction [Recovered/Resolved]
  - Infusion related reaction [Recovered/Resolved]
